FAERS Safety Report 13796281 (Version 1)
Quarter: 2017Q3

REPORT INFORMATION
  Report Type: Report from Study
  Country: US (occurrence: US)
  Receive Date: 20170726
  Receipt Date: 20170726
  Transmission Date: 20171127
  Serious: Yes (Hospitalization, Other)
  Sender: FDA-Public Use
  Company Number: US-COVIS PHARMA S.A.R.L.-2017COV00041

PATIENT
  Age: 61 Year
  Sex: Female
  Weight: 98.41 kg

DRUGS (7)
  1. TUDORZA PRESSAIR [Suspect]
     Active Substance: ACLIDINIUM BROMIDE
     Dosage: 1 DOSAGE UNITS, 1X/DAY
  2. ASPIRIN. [Concomitant]
     Active Substance: ASPIRIN
     Indication: PAIN
  3. TUDORZA PRESSAIR [Suspect]
     Active Substance: ACLIDINIUM BROMIDE
     Indication: CHRONIC OBSTRUCTIVE PULMONARY DISEASE
     Dosage: 1 DOSAGE UNITS, 2X/DAY
     Route: 055
     Dates: start: 2016
  4. PRILOSEC [Suspect]
     Active Substance: OMEPRAZOLE MAGNESIUM
     Indication: GASTROOESOPHAGEAL REFLUX DISEASE
     Dosage: 20 MG, 2X/DAY
     Route: 048
     Dates: start: 2015
  5. LISINOPRIL. [Suspect]
     Active Substance: LISINOPRIL
     Indication: HYPERTENSION
     Dosage: 20 MG, 1X/DAY
     Dates: start: 2014
  6. MIMVEY [Concomitant]
     Active Substance: ESTRADIOL\NORETHINDRONE ACETATE
     Indication: HORMONE THERAPY
  7. GABAPENTIN. [Concomitant]
     Active Substance: GABAPENTIN
     Indication: PAIN
     Dosage: 600 MG, 2X/DAY

REACTIONS (9)
  - Back pain [Recovered/Resolved]
  - Body height increased [Unknown]
  - Incorrect drug administration duration [Unknown]
  - Blood pressure decreased [Unknown]
  - Spinal operation [Unknown]
  - Fibromyalgia [Unknown]
  - Chronic obstructive pulmonary disease [Unknown]
  - Reflux gastritis [Unknown]
  - Dyspnoea [Unknown]

NARRATIVE: CASE EVENT DATE: 201706
